FAERS Safety Report 7973658-8 (Version None)
Quarter: 2011Q4

REPORT INFORMATION
  Report Type: 
  Country: None (occurrence: None)
  Receive Date: 20111213
  Receipt Date: 20111206
  Transmission Date: 20120403
  Serious: Yes (Death, Hospitalization)
  Sender: FDA-Public Use
  Company Number: FR-ELI_LILLY_AND_COMPANY-FR201112002595

PATIENT
  Sex: Male

DRUGS (6)
  1. LOVENOX [Concomitant]
  2. CISPLATIN [Concomitant]
     Indication: LUNG CANCER METASTATIC
     Dosage: 149 MG, PER CYCLE
     Route: 042
     Dates: start: 20110517
  3. LORAZEPAM [Concomitant]
     Dosage: 15. MG, QD
  4. HEPARIN [Concomitant]
  5. CITALOPRAM [Concomitant]
     Dosage: 20 MG, UNKNOWN
  6. ALIMTA [Suspect]
     Indication: LUNG CANCER METASTATIC
     Dosage: 1000 MG, 1DAY/CYCLE
     Route: 042
     Dates: start: 20110517

REACTIONS (2)
  - DEATH [None]
  - THROMBOCYTOPENIA [None]
